FAERS Safety Report 4992520-6 (Version None)
Quarter: 2006Q1

REPORT INFORMATION
  Report Type: 
  Country: None (occurrence: None)
  Receive Date: 20060314
  Receipt Date: 20060112
  Transmission Date: 20060701
  Serious: No
  Sender: FDA-Public Use
  Company Number: 2006-00075

PATIENT
  Age: 78 Year
  Sex: Male
  Weight: 64.4 kg

DRUGS (2)
  1. VELCADE [Suspect]
     Indication: MULTIPLE MYELOMA
     Dosage: 2.2 MG, INTRAVENOUS
     Route: 042
     Dates: start: 20051001, end: 20060106
  2. CARDURA [Concomitant]

REACTIONS (1)
  - CARDIAC FAILURE CONGESTIVE [None]
